FAERS Safety Report 12463375 (Version 1)
Quarter: 2016Q2

REPORT INFORMATION
  Report Type: Spontaneous
  Country: US (occurrence: US)
  Receive Date: 20160614
  Receipt Date: 20160614
  Transmission Date: 20160815
  Serious: Yes (Other)
  Sender: FDA-Public Use
  Company Number: PHEH2016US014207

PATIENT
  Age: 47 Year
  Sex: Female

DRUGS (1)
  1. GILENYA [Suspect]
     Active Substance: FINGOLIMOD HYDROCHLORIDE
     Indication: PRODUCT USED FOR UNKNOWN INDICATION
     Dosage: UNK
     Route: 065

REACTIONS (10)
  - Blindness [Unknown]
  - Paraesthesia [Unknown]
  - Diplopia [Unknown]
  - Optic neuritis [Unknown]
  - Liver function test increased [Unknown]
  - Balance disorder [Unknown]
  - Fatigue [Unknown]
  - Asthenia [Unknown]
  - Hypoaesthesia [Unknown]
  - Vision blurred [Unknown]
